FAERS Safety Report 22102257 (Version 2)
Quarter: 2023Q1

REPORT INFORMATION
  Report Type: Spontaneous
  Country: FR (occurrence: FR)
  Receive Date: 20230316
  Receipt Date: 20230328
  Transmission Date: 20230417
  Serious: Yes (Other)
  Sender: FDA-Public Use
  Company Number: FR-OTSUKA-2021_033670

PATIENT
  Age: 9 Year
  Sex: Male

DRUGS (7)
  1. ARIPIPRAZOLE [Suspect]
     Active Substance: ARIPIPRAZOLE
     Indication: Schizophrenia
     Dosage: 15 MILLIGRAM, ONCE A DAY
     Route: 065
  2. RISPERIDONE [Suspect]
     Active Substance: RISPERIDONE
     Indication: Psychotic disorder
     Dosage: 2 MILLIGRAM, ONCE A DAY
     Route: 065
  3. FLUVOXAMINE [Interacting]
     Active Substance: FLUVOXAMINE
     Indication: Product used for unknown indication
     Dosage: 50 MILLIGRAM, ONCE A DAY
     Route: 065
  4. FLUVOXAMINE [Interacting]
     Active Substance: FLUVOXAMINE
     Dosage: 25 MILLIGRAM, ONCE A DAY
     Route: 065
  5. CLOZAPINE [Interacting]
     Active Substance: CLOZAPINE
     Indication: Psychotic disorder
     Dosage: 300 MILLIGRAM, ONCE A DAY,A PROGRESSIVE INCREASE TO 300 MG DAILY
     Route: 065
  6. LEVOMEPROMAZINE [Interacting]
     Active Substance: LEVOMEPROMAZINE
     Indication: Schizophrenia
     Dosage: 15 MILLIGRAM, ONCE A DAY
     Route: 065
  7. HALOPERIDOL [Concomitant]
     Active Substance: HALOPERIDOL
     Indication: Product used for unknown indication
     Dosage: 1.5 MILLIGRAM, ONCE A DAY
     Route: 065

REACTIONS (11)
  - Schizophrenia [Recovering/Resolving]
  - Condition aggravated [Recovering/Resolving]
  - Sedation [Recovering/Resolving]
  - Drug interaction [Recovering/Resolving]
  - Drug resistance [Unknown]
  - Product use issue [Recovering/Resolving]
  - Drug level above therapeutic [Unknown]
  - Drug ineffective [Recovering/Resolving]
  - Hallucination [Recovering/Resolving]
  - Off label use [Recovering/Resolving]
  - Overdose [Recovering/Resolving]
